FAERS Safety Report 9755320 (Version 1)
Quarter: 2013Q4

REPORT INFORMATION
  Report Type: Spontaneous
  Country: US (occurrence: US)
  Receive Date: 20131213
  Receipt Date: 20131213
  Transmission Date: 20140711
  Serious: No
  Sender: FDA-Public Use
  Company Number: US-GLAXOSMITHKLINE-A1015921A

PATIENT
  Sex: Female

DRUGS (2)
  1. EQUATE NTS [Suspect]
  2. EQUATE DENTAL WHITENING STRIPS [Concomitant]

REACTIONS (2)
  - Dyspnoea [Unknown]
  - Drug interaction [Unknown]
